FAERS Safety Report 19633869 (Version 2)
Quarter: 2024Q3

REPORT INFORMATION
  Report Type: Report from Study
  Country: US (occurrence: US)
  Receive Date: 20210730
  Receipt Date: 20240925
  Transmission Date: 20241017
  Serious: No
  Sender: GLAXOSMITHKLINE
  Company Number: US-GLAXOSMITHKLINE-US2021AMR161969

PATIENT
  Age: 71 Year
  Sex: Female

DRUGS (2)
  1. NIRAPARIB [Suspect]
     Active Substance: NIRAPARIB
     Indication: Ovarian cancer
     Dosage: 2 DF, QD, (CAPSULES)
     Route: 048
     Dates: start: 20210720
  2. TYLENOL [Concomitant]
     Active Substance: ACETAMINOPHEN
     Indication: Neck pain
     Dosage: UNK, 500 TO 1000 MG AS NEEDED

REACTIONS (1)
  - Myalgia [Not Recovered/Not Resolved]

NARRATIVE: CASE EVENT DATE: 20210701
